FAERS Safety Report 11645272 (Version 1)
Quarter: 2015Q4

REPORT INFORMATION
  Report Type: Spontaneous
  Country: US (occurrence: US)
  Receive Date: 20151020
  Receipt Date: 20151020
  Transmission Date: 20160304
  Serious: Yes (Hospitalization, Other)
  Sender: FDA-Public Use
  Company Number: US-BAYER-2015-441388

PATIENT
  Age: 85 Year
  Sex: Female
  Weight: 54.42 kg

DRUGS (1)
  1. BAYER LOW DOSE [Suspect]
     Active Substance: ASPIRIN
     Dosage: 1-4 PILLS AS NEEDED, QD
     Route: 048
     Dates: end: 201509

REACTIONS (5)
  - Skin haemorrhage [Recovered/Resolved]
  - Haemorrhage intracranial [None]
  - Skin haemorrhage [Recovered/Resolved]
  - Intentional product use issue [None]
  - Skull fracture [None]

NARRATIVE: CASE EVENT DATE: 20151007
